FAERS Safety Report 19943376 (Version 1)
Quarter: 2021Q4

REPORT INFORMATION
  Report Type: Spontaneous
  Country: CA (occurrence: CA)
  Receive Date: 20211012
  Receipt Date: 20211012
  Transmission Date: 20220303
  Serious: Yes (Hospitalization, Other)
  Sender: FDA-Public Use
  Company Number: CA-LUPIN PHARMACEUTICALS INC.-2021-19176

PATIENT
  Age: 69 Year
  Sex: Male

DRUGS (10)
  1. METHYLPREDNISOLONE [Suspect]
     Active Substance: METHYLPREDNISOLONE
     Indication: Immunosuppressant drug therapy
     Dosage: 125 MILLIGRAM, QD
     Route: 042
  2. METHYLPREDNISOLONE [Suspect]
     Active Substance: METHYLPREDNISOLONE
     Indication: Immune-mediated myocarditis
     Dosage: SUBSEQUENTLY ESCALATED TO A PULSE DOSE OF 1 G DAILY FOR 3 DAYS
     Route: 042
  3. MYCOPHENOLIC ACID [Suspect]
     Active Substance: MYCOPHENOLIC ACID
     Indication: Immunosuppressant drug therapy
     Dosage: 1 GRAM, BID
     Route: 048
  4. MYCOPHENOLIC ACID [Suspect]
     Active Substance: MYCOPHENOLIC ACID
     Indication: Immune-mediated myocarditis
  5. PEMBROLIZUMAB [Concomitant]
     Active Substance: PEMBROLIZUMAB
     Indication: Hormone-refractory prostate cancer
     Dosage: HE RECENTLY RECEIVED 2 CYCLES OF PEMBROLIZUMAB (200 MG PER CYCLE, INTRAVENOUSLY) 10 AND 4 WEEKS BEFO
     Route: 042
  6. PEMBROLIZUMAB [Concomitant]
     Active Substance: PEMBROLIZUMAB
     Indication: Metastases to bone
  7. ABIRATERONE. [Concomitant]
     Active Substance: ABIRATERONE ACETATE
     Indication: Hormone-refractory prostate cancer
     Dosage: 1000 MILLIGRAM, QD
     Route: 065
  8. ABIRATERONE. [Concomitant]
     Active Substance: ABIRATERONE ACETATE
     Indication: Metastases to bone
  9. PREDNISONE [Concomitant]
     Active Substance: PREDNISONE
     Indication: Hormone-refractory prostate cancer
     Dosage: 5 MILLIGRAM, BID
     Route: 065
  10. PREDNISONE [Concomitant]
     Active Substance: PREDNISONE
     Indication: Metastases to bone

REACTIONS (9)
  - Drug ineffective for unapproved indication [Unknown]
  - Condition aggravated [Unknown]
  - Oesophagitis [Unknown]
  - Gastritis [Unknown]
  - Gastric ulcer [Recovering/Resolving]
  - Duodenal ulcer [Recovering/Resolving]
  - Anaemia [Unknown]
  - Gastrointestinal haemorrhage [Unknown]
  - Off label use [Unknown]
